FAERS Safety Report 6696112-2 (Version None)
Quarter: 2010Q2

REPORT INFORMATION
  Report Type: 
  Country: None (occurrence: None)
  Receive Date: 20100426
  Receipt Date: 20100421
  Transmission Date: 20101027
  Serious: Yes (Death, Other)
  Sender: FDA-Public Use
  Company Number: US-BAYER-201020137NA

PATIENT
  Age: 74 Year
  Sex: Female

DRUGS (2)
  1. SORAFENIB [Suspect]
     Indication: METASTATIC MALIGNANT MELANOMA
     Dosage: TOTAL DAILY DOSE: 400 MG  UNIT DOSE: 200 MG
     Route: 048
     Dates: start: 20091014, end: 20100124
  2. TEMSIROLIMUS [Suspect]
     Indication: METASTATIC MALIGNANT MELANOMA
     Dosage: AS USED: 25 MG
     Route: 042
     Dates: start: 20091014, end: 20100113

REACTIONS (2)
  - PANCREATITIS [None]
  - RENAL FAILURE [None]
